FAERS Safety Report 6444560-8 (Version None)
Quarter: 2009Q4

REPORT INFORMATION
  Report Type: 
  Country: None (occurrence: None)
  Receive Date: 20091118
  Receipt Date: 20090825
  Transmission Date: 20100525
  Serious: No
  Sender: FDA-Public Use
  Company Number: A0804076A

PATIENT
  Sex: Female

DRUGS (2)
  1. COREG CR [Suspect]
     Indication: LEFT VENTRICULAR DYSFUNCTION
     Dosage: 40MG PER DAY
     Route: 048
     Dates: start: 20090617
  2. MULTIPLE MEDICATIONS [Concomitant]

REACTIONS (3)
  - COUGH [None]
  - MUSCLE SPASMS [None]
  - WEIGHT INCREASED [None]
